FAERS Safety Report 21184309 (Version 1)
Quarter: 2022Q3

REPORT INFORMATION
  Report Type: Other
  Country: FR (occurrence: None)
  Receive Date: 20220808
  Receipt Date: 20220808
  Transmission Date: 20221027
  Serious: Yes (Other)
  Sender: FDA-Public Use
  Company Number: FR-ROCHE-3155215

PATIENT
  Age: 61 Year
  Sex: Male

DRUGS (1)
  1. PRALSETINIB [Suspect]
     Active Substance: PRALSETINIB
     Indication: Medullary thyroid cancer
     Route: 065
     Dates: start: 201811

REACTIONS (3)
  - Pneumoperitoneum [Recovered/Resolved]
  - Diverticulitis [Recovered/Resolved]
  - Peritonitis [Recovered/Resolved]
